FAERS Safety Report 6798349-0 (Version None)
Quarter: 2010Q2

REPORT INFORMATION
  Report Type: 
  Country: None (occurrence: None)
  Receive Date: 20100623
  Receipt Date: 20100608
  Transmission Date: 20101027
  Serious: Yes (Hospitalization)
  Sender: FDA-Public Use
  Company Number: AUR-APL-2010-01498

PATIENT
  Age: 58 Year
  Sex: Male

DRUGS (4)
  1. BISOPROLOL FUMARATE [Suspect]
     Indication: ATRIAL FIBRILLATION
     Dosage: 5 MG, QD-BID, ORAL
     Route: 048
  2. PROPAFENONE HCL [Suspect]
     Dosage: 300 MG, BID, ORAL
  3. DIGOXIN [Suspect]
     Indication: ATRIAL FIBRILLATION
     Dosage: 125 UG - DAILY
  4. WARFARIN [Suspect]
     Indication: ATRIAL FIBRILLATION

REACTIONS (6)
  - ATRIAL TACHYCARDIA [None]
  - CHEST DISCOMFORT [None]
  - FALL [None]
  - MALAISE [None]
  - PALLOR [None]
  - PRESYNCOPE [None]
